FAERS Safety Report 4885992-9 (Version None)
Quarter: 2006Q1

REPORT INFORMATION
  Report Type: 
  Country: None (occurrence: None)
  Receive Date: 20060118
  Receipt Date: 20060118
  Transmission Date: 20060701
  Serious: Yes (Hospitalization)
  Sender: FDA-Public Use
  Company Number: None

PATIENT
  Age: 82 Year
  Sex: Male
  Weight: 84 kg

DRUGS (7)
  1. WARFARIN 5MG DUPONT [Suspect]
     Indication: ATRIAL FIBRILLATION
     Dosage: 7.5MG/5MG MWF/REST OF WEEK PO
     Route: 048
     Dates: start: 19850101, end: 20060117
  2. ATENOLOL [Concomitant]
  3. DIGOXIN [Concomitant]
  4. GLIPIZIDE [Concomitant]
  5. LEVOTHYROXINE SODIUM [Concomitant]
  6. LISINOPRIL [Concomitant]
  7. LOVASTATIN [Concomitant]

REACTIONS (2)
  - BLADDER DISORDER [None]
  - BLOOD URINE PRESENT [None]
